FAERS Safety Report 6523350-1 (Version None)
Quarter: 2009Q4

REPORT INFORMATION
  Report Type: 
  Country: None (occurrence: None)
  Receive Date: 20091231
  Receipt Date: 20091228
  Transmission Date: 20100525
  Serious: Yes (Other)
  Sender: FDA-Public Use
  Company Number: US-BRISTOL-MYERS SQUIBB COMPANY-14914691

PATIENT
  Age: 64 Year
  Sex: Female
  Weight: 93 kg

DRUGS (15)
  1. PACLITAXEL [Suspect]
     Indication: OVARIAN CANCER
     Dosage: 354MG;LAST INF:10FEB09(CYCLE 7;CUMULATIVE DOSE:2496MG)
     Route: 042
     Dates: start: 20081007, end: 20090210
  2. CARBOPLATIN [Suspect]
     Indication: OVARIAN CANCER
     Dosage: INITIAL DOSE:605MG;CUMULATIVE DOSE:2210MG;
     Route: 042
     Dates: start: 20081007, end: 20081209
  3. CP-870,893 [Suspect]
     Indication: OVARIAN CANCER
     Dosage: CUMULATIVE DOSE:114MG
     Dates: start: 20081014, end: 20090127
  4. PARACETAMOL [Concomitant]
     Route: 048
     Dates: start: 20081014, end: 20090127
  5. APREPITANT [Concomitant]
     Route: 048
     Dates: start: 20081016
  6. DEXAMETHASONE [Concomitant]
     Route: 042
     Dates: start: 20081007, end: 20090210
  7. RANITIDINE [Concomitant]
     Indication: PREMEDICATION
     Dosage: ORAL(07OCT08-10FEB09)
     Route: 042
     Dates: start: 20081007, end: 20090210
  8. PALONOSETRON [Concomitant]
     Route: 042
     Dates: start: 20081007, end: 20090210
  9. CYMBALTA [Concomitant]
     Indication: DEPRESSION
     Dates: start: 20081028
  10. DIOVAN [Concomitant]
     Indication: HYPERTENSION
     Dates: start: 20080930
  11. FISH OIL [Concomitant]
     Dates: start: 20080930
  12. HYDROCHLOROTHIAZIDE [Concomitant]
     Indication: HYPERTENSION
     Dates: start: 20080930
  13. MULTI-VITAMINS [Concomitant]
  14. BENADRYL [Concomitant]
     Indication: PREMEDICATION
     Route: 042
     Dates: start: 20081007, end: 20090210
  15. SOLU-MEDROL [Concomitant]
     Indication: PREMEDICATION
     Route: 042

REACTIONS (1)
  - OPTIC NERVE INFARCTION [None]
